FAERS Safety Report 18446113 (Version 2)
Quarter: 2021Q4

REPORT INFORMATION
  Report Type: Spontaneous
  Country: US (occurrence: US)
  Receive Date: 20201030
  Receipt Date: 20211005
  Transmission Date: 20220304
  Serious: Yes (Hospitalization, Congenital Anomaly, Other)
  Sender: FDA-Public Use
  Company Number: US-GLAXOSMITHKLINE-US2020GSK212479

PATIENT
  Sex: Female

DRUGS (1)
  1. PAXIL [Suspect]
     Active Substance: PAROXETINE HYDROCHLORIDE
     Indication: Product used for unknown indication
     Dosage: UNK
     Route: 064

REACTIONS (15)
  - Autism spectrum disorder [Unknown]
  - Major depression [Unknown]
  - Depressive symptom [Unknown]
  - Generalised anxiety disorder [Unknown]
  - Suicidal ideation [Unknown]
  - Anxiety disorder [Unknown]
  - Anxiety [Unknown]
  - Depression [Unknown]
  - Social anxiety disorder [Unknown]
  - Somatic symptom disorder [Unknown]
  - Disturbance in social behaviour [Unknown]
  - Obsessive-compulsive disorder [Unknown]
  - Sleep disorder [Unknown]
  - Foetal exposure during pregnancy [Unknown]
  - Insomnia [Unknown]

NARRATIVE: CASE EVENT DATE: 20131029
